FAERS Safety Report 6984412-8 (Version None)
Quarter: 2010Q3

REPORT INFORMATION
  Report Type: 
  Country: None (occurrence: None)
  Receive Date: 20100915
  Receipt Date: 20100907
  Transmission Date: 20110219
  Serious: Yes (Hospitalization)
  Sender: FDA-Public Use
  Company Number: CHPA2010CA14321

PATIENT
  Age: 94 Year
  Sex: Female
  Weight: 54.422 kg

DRUGS (1)
  1. TRANSDERM VOYAGER [Suspect]
     Indication: SALIVARY HYPERSECRETION
     Dosage: 1 PATCH
     Route: 062
     Dates: start: 20100813, end: 20100813

REACTIONS (6)
  - ABASIA [None]
  - ASTHENIA [None]
  - CONFUSIONAL STATE [None]
  - COORDINATION ABNORMAL [None]
  - DISORIENTATION [None]
  - OFF LABEL USE [None]
